FAERS Safety Report 5787769-9 (Version None)
Quarter: 2008Q2

REPORT INFORMATION
  Report Type: 
  Country: None (occurrence: None)
  Receive Date: 20080624
  Receipt Date: 20080624
  Transmission Date: 20081010
  Serious: No
  Sender: FDA-Public Use
  Company Number: None

PATIENT
  Age: 4 Year
  Sex: Female
  Weight: 17.2367 kg

DRUGS (1)
  1. MOTRIN [Suspect]
     Indication: PYREXIA
     Dosage: 7.5 ML 4 TIMES A DAY PO
     Route: 048
     Dates: start: 20080509, end: 20080510

REACTIONS (4)
  - INFLUENZA [None]
  - MALAISE [None]
  - NASOPHARYNGITIS [None]
  - RASH MACULAR [None]
